FAERS Safety Report 6230928-1 (Version None)
Quarter: 2009Q2

REPORT INFORMATION
  Report Type: 
  Country: None (occurrence: None)
  Receive Date: 20090616
  Receipt Date: 20090612
  Transmission Date: 20091009
  Serious: Yes (Death, Hospitalization)
  Sender: FDA-Public Use
  Company Number: PHEH2009US06052

PATIENT
  Sex: Female
  Weight: 42.177 kg

DRUGS (2)
  1. EXJADE [Suspect]
     Indication: TRANSFUSION
     Dosage: 875 MG, QD
  2. EXJADE [Suspect]
     Indication: MYELODYSPLASTIC SYNDROME

REACTIONS (9)
  - ABDOMINAL PAIN [None]
  - CHEST PAIN [None]
  - DYSPHAGIA [None]
  - HAEMATOCRIT DECREASED [None]
  - HAEMOGLOBIN DECREASED [None]
  - MYELODYSPLASTIC SYNDROME [None]
  - PLATELET COUNT DECREASED [None]
  - REFUSAL OF TREATMENT BY PATIENT [None]
  - WHITE BLOOD CELL COUNT DECREASED [None]
